FAERS Safety Report 8006122-0 (Version None)
Quarter: 2011Q4

REPORT INFORMATION
  Report Type: 
  Country: None (occurrence: None)
  Receive Date: 20111226
  Receipt Date: 20111221
  Transmission Date: 20120403
  Serious: Yes (Death, Other)
  Sender: FDA-Public Use
  Company Number: FR-PFIZER INC-2011309456

PATIENT
  Age: 31 Year
  Sex: Male

DRUGS (4)
  1. NICORETTE [Suspect]
     Indication: SMOKING CESSATION THERAPY
     Dosage: 2 MG SUGAR FREE, 1 CHEWING GUM, AS NEEDED
     Route: 048
     Dates: start: 20080526, end: 20080101
  2. VARENICLINE TARTRATE [Suspect]
     Dosage: 1 MG, 2X/DAY
     Route: 048
     Dates: start: 20080602, end: 20080101
  3. VARENICLINE TARTRATE [Suspect]
     Indication: SMOKING CESSATION THERAPY
     Dosage: 0.5 MG, 1X/DAY
     Route: 048
     Dates: start: 20080526, end: 20080528
  4. VARENICLINE TARTRATE [Suspect]
     Dosage: 0.5 MG, 2X/DAY
     Route: 048
     Dates: start: 20080529, end: 20080601

REACTIONS (4)
  - CARDIAC FAILURE [None]
  - HYPERTENSION [None]
  - MYOCARDITIS [None]
  - HYPERCHOLESTEROLAEMIA [None]
